FAERS Safety Report 9988826 (Version 1)
Quarter: 2013Q4

REPORT INFORMATION
  Report Type: Spontaneous
  Country: ES (occurrence: None)
  Receive Date: 20131015
  Receipt Date: 20131015
  Transmission Date: 20140711
  Serious: Yes (Other)
  Sender: FDA-Public Use
  Company Number: AUR-APL-2013-08451

PATIENT
  Age: 69 Year
  Sex: Male

DRUGS (2)
  1. OLANZAPINE (OLANZAPINE) [Suspect]
     Indication: MAJOR DEPRESSION
  2. MIRTAZAPINE [Suspect]
     Indication: MAJOR DEPRESSION

REACTIONS (1)
  - Neuroleptic malignant syndrome [None]
